FAERS Safety Report 21066441 (Version 1)
Quarter: 2022Q3

REPORT INFORMATION
  Report Type: Spontaneous
  Country: JP (occurrence: JP)
  Receive Date: 20220711
  Receipt Date: 20220711
  Transmission Date: 20221027
  Serious: Yes (Other)
  Sender: FDA-Public Use
  Company Number: JP-SA-2020SA031176

PATIENT
  Age: 80 Year
  Sex: Male

DRUGS (1)
  1. HERBESSER [Suspect]
     Active Substance: DILTIAZEM HYDROCHLORIDE
     Indication: Hypertension
     Route: 048

REACTIONS (3)
  - Oesophageal stenosis [Unknown]
  - Oesophageal carcinoma [Unknown]
  - Dysphagia [Unknown]
